FAERS Safety Report 4646393-1 (Version None)
Quarter: 2005Q2

REPORT INFORMATION
  Report Type: 
  Country: None (occurrence: None)
  Receive Date: 20050427
  Receipt Date: 20040517
  Transmission Date: 20051028
  Serious: No
  Sender: FDA-Public Use
  Company Number: US-GLAXOSMITHKLINE-A0511102A

PATIENT
  Age: 81 Year
  Sex: Male

DRUGS (3)
  1. SEREVENT [Suspect]
     Indication: ASTHMA
     Dosage: 50MCG PER DAY
     Route: 055
     Dates: start: 19940101, end: 20040101
  2. ALBUTEROL [Concomitant]
  3. THEOPHYLLINE [Concomitant]

REACTIONS (1)
  - DRUG INEFFECTIVE [None]
